FAERS Safety Report 18755664 (Version 2)
Quarter: 2023Q2

REPORT INFORMATION
  Report Type: Report from Study
  Country: US (occurrence: US)
  Receive Date: 20210119
  Receipt Date: 20230629
  Transmission Date: 20230721
  Serious: No
  Sender: FDA-Public Use
  Company Number: US-KYOWAKIRIN-2021BKK000433

PATIENT

DRUGS (1)
  1. BUROSUMAB [Suspect]
     Active Substance: BUROSUMAB
     Indication: Hereditary hypophosphataemic rickets
     Dosage: 20 MG TWICE A MONTH
     Route: 065
     Dates: start: 20191112

REACTIONS (4)
  - Suspected COVID-19 [Unknown]
  - Anosmia [Unknown]
  - Ageusia [Unknown]
  - Product availability issue [Unknown]
